FAERS Safety Report 9136593 (Version 1)
Quarter: 2013Q1

REPORT INFORMATION
  Report Type: Spontaneous
  Country: US (occurrence: US)
  Receive Date: 20130304
  Receipt Date: 20130304
  Transmission Date: 20140127
  Serious: No
  Sender: FDA-Public Use
  Company Number: US-ABBOTT-12P-163-0998382-00

PATIENT
  Age: 83 Year
  Sex: Male

DRUGS (8)
  1. ANDROGEL [Suspect]
     Indication: BLOOD TESTOSTERONE DECREASED
     Dosage: PACKET
     Dates: start: 20120925, end: 20120928
  2. ANDROGEL [Suspect]
     Indication: LETHARGY
  3. ANDROGEL [Suspect]
     Indication: SOMNOLENCE
  4. RAMAPRIL [Concomitant]
     Indication: HYPERTENSION
  5. ADVAIR [Concomitant]
     Indication: PRODUCT USED FOR UNKNOWN INDICATION
     Dosage: 100/50MG
  6. ASPIRIN [Concomitant]
     Indication: PRODUCT USED FOR UNKNOWN INDICATION
  7. FLONASE [Concomitant]
     Indication: HYPERSENSITIVITY
     Dosage: 1 SQUIRT EACH NOSTRIL
  8. MULTIVITAMIN [Concomitant]
     Indication: PRODUCT USED FOR UNKNOWN INDICATION

REACTIONS (6)
  - Sleep disorder [Not Recovered/Not Resolved]
  - Hypertension [Recovering/Resolving]
  - Abnormal dreams [Recovered/Resolved]
  - Dyspnoea [Recovered/Resolved]
  - Bladder disorder [Not Recovered/Not Resolved]
  - Sleep apnoea syndrome [Unknown]
